FAERS Safety Report 23939525 (Version 1)
Quarter: 2024Q2

REPORT INFORMATION
  Report Type: Spontaneous
  Country: US (occurrence: US)
  Receive Date: 20240605
  Receipt Date: 20240605
  Transmission Date: 20240716
  Serious: Yes (Other)
  Sender: FDA-Public Use
  Company Number: US-JNJFOC-20240585597

PATIENT
  Sex: Male

DRUGS (2)
  1. TALVEY [Suspect]
     Active Substance: TALQUETAMAB-TGVS
     Indication: Plasma cell myeloma
     Dosage: STEP-UP DOSE 1 ON FRIDAY
     Route: 058
     Dates: start: 20240524
  2. TALVEY [Suspect]
     Active Substance: TALQUETAMAB-TGVS
     Dosage: STEP UP DOSE 2 ONE DAY DELAYED FROM PLANNED SCHEDULE
     Route: 058

REACTIONS (1)
  - Cytokine release syndrome [Recovered/Resolved]

NARRATIVE: CASE EVENT DATE: 20240527
